FAERS Safety Report 9648910 (Version 2)
Quarter: 2013Q4

REPORT INFORMATION
  Report Type: Spontaneous
  Country: IL (occurrence: IL)
  Receive Date: 20131028
  Receipt Date: 20131128
  Transmission Date: 20140711
  Serious: Yes (Death, Hospitalization)
  Sender: FDA-Public Use
  Company Number: IL-CELGENEUS-082-50794-13103074

PATIENT
  Age: 73 Year
  Sex: Male

DRUGS (3)
  1. VIDAZA [Suspect]
     Indication: CHRONIC MYELOMONOCYTIC LEUKAEMIA
     Route: 058
     Dates: start: 20130407, end: 20130927
  2. HYDROXYUREA [Concomitant]
     Indication: CHRONIC MYELOMONOCYTIC LEUKAEMIA
     Route: 065
  3. ATENDOL [Concomitant]
     Indication: HYPERTENSION
     Route: 065

REACTIONS (2)
  - Haemorrhagic stroke [Fatal]
  - Chronic myeloid leukaemia [Unknown]
